FAERS Safety Report 10467423 (Version 2)
Quarter: 2014Q3

REPORT INFORMATION
  Report Type: Report from Study
  Country: FR (occurrence: FR)
  Receive Date: 20140922
  Receipt Date: 20140922
  Transmission Date: 20150326
  Serious: Yes (Death, Other)
  Sender: FDA-Public Use
  Company Number: FR-BRISTOL-MYERS SQUIBB COMPANY-19958636

PATIENT

DRUGS (3)
  1. SUSTIVA [Suspect]
     Active Substance: EFAVIRENZ
     Dosage: ORAL
     Route: 064
  2. VIRAMUNE [Suspect]
     Active Substance: NEVIRAPINE
     Dosage: ORAL
     Route: 064
  3. COMBIVIR [Suspect]
     Active Substance: LAMIVUDINE\ZIDOVUDINE
     Dosage: ORAL?ONGOING
     Route: 064

REACTIONS (4)
  - Foetal exposure during pregnancy [Unknown]
  - Pulmonary hypoplasia [Unknown]
  - Ascites [Unknown]
  - Stillbirth [Fatal]
